FAERS Safety Report 5186464-7 (Version None)
Quarter: 2006Q4

REPORT INFORMATION
  Report Type: 
  Country: None (occurrence: None)
  Receive Date: 20061213
  Receipt Date: 20061127
  Transmission Date: 20070319
  Serious: Yes (Disabling, Other)
  Sender: FDA-Public Use
  Company Number: 2006001491

PATIENT
  Age: 60 Year
  Sex: Male

DRUGS (6)
  1. TARCEVA [Suspect]
     Indication: NON-SMALL CELL LUNG CANCER
     Dosage: 150 MG (QD), ORAL
     Route: 048
     Dates: start: 20060501, end: 20060530
  2. TARCEVA [Suspect]
     Indication: DRUG USE FOR UNKNOWN INDICATION
  3. MEDROL [Concomitant]
  4. KLEXANE (HEPARIN-FRACTION, SODIUM SALT) [Concomitant]
  5. PARACET (PARACETAMOL) [Concomitant]
  6. PANTOPRAZOLE SODIUM [Concomitant]

REACTIONS (9)
  - FEEDING DISORDER [None]
  - GAIT DISTURBANCE [None]
  - LUNG INFILTRATION [None]
  - MALAISE [None]
  - MALIGNANT NEOPLASM PROGRESSION [None]
  - MUSCLE ATROPHY [None]
  - MUSCULAR WEAKNESS [None]
  - NON-SMALL CELL LUNG CANCER METASTATIC [None]
  - PNEUMONIA BACTERIAL [None]
